FAERS Safety Report 6137170-3 (Version None)
Quarter: 2009Q1

REPORT INFORMATION
  Report Type: 
  Country: None (occurrence: None)
  Receive Date: 20090326
  Receipt Date: 20090326
  Transmission Date: 20090719
  Serious: Yes (Hospitalization, Disabling)
  Sender: FDA-Public Use
  Company Number: None

PATIENT
  Age: 45 Year
  Sex: Female
  Weight: 69.4003 kg

DRUGS (21)
  1. LEVAQUIN [Suspect]
     Indication: PNEUMONIA
     Dosage: 750MG EVERY 24 HOURS PO  (2 DOSES)
     Route: 048
     Dates: start: 20090301, end: 20090302
  2. FUROSEMIDE [Concomitant]
  3. GABAPENTIN [Concomitant]
  4. CEFTRIAXONE [Concomitant]
  5. BACITRACIN [Concomitant]
  6. CLINDAMYCIN HCL [Concomitant]
  7. CALCIUM W/VITAMIN D [Concomitant]
  8. CEFEPIME [Concomitant]
  9. OMEPRAZOLE [Concomitant]
  10. VANCOMYCIN HCL [Concomitant]
  11. PANCREASE [Concomitant]
  12. CYMBALTA [Concomitant]
  13. NADOLOL [Concomitant]
  14. FOLIC ACID [Concomitant]
  15. THIAMINE HCL [Concomitant]
  16. MULTI-VITAMIN [Concomitant]
  17. HUMALOG [Concomitant]
  18. HYDROMORPHONE HCL [Concomitant]
  19. ACETAMINOPHEN [Concomitant]
  20. LANTUS [Concomitant]
  21. DIPHENHYDRAMINE HCL [Concomitant]

REACTIONS (8)
  - ARTHRALGIA [None]
  - BLOOD PRESSURE SYSTOLIC INCREASED [None]
  - CELLULITIS [None]
  - DEPRESSED LEVEL OF CONSCIOUSNESS [None]
  - HYPOGLYCAEMIA [None]
  - HYPONATRAEMIA [None]
  - MOANING [None]
  - NOSOCOMIAL INFECTION [None]
